FAERS Safety Report 20468368 (Version 1)
Quarter: 2022Q1

REPORT INFORMATION
  Report Type: Spontaneous
  Country: ES (occurrence: ES)
  Receive Date: 20220214
  Receipt Date: 20220214
  Transmission Date: 20220423
  Serious: Yes (Hospitalization)
  Sender: FDA-Public Use
  Company Number: None

PATIENT
  Age: 80 Year
  Sex: Male

DRUGS (2)
  1. IRINOTECAN [Suspect]
     Active Substance: IRINOTECAN
     Indication: Product used for unknown indication
     Dates: start: 20210316
  2. PANITUMUMAB [Concomitant]
     Active Substance: PANITUMUMAB
     Dates: start: 20210316

REACTIONS (5)
  - Skin toxicity [Unknown]
  - Hyperbilirubinaemia [Recovered/Resolved]
  - Neutropenia [Recovered/Resolved]
  - Acute kidney injury [Recovered/Resolved]
  - Diarrhoea [Recovered/Resolved]

NARRATIVE: CASE EVENT DATE: 20210325
